FAERS Safety Report 13117106 (Version 9)
Quarter: 2019Q3

REPORT INFORMATION
  Report Type: Spontaneous
  Country: JP (occurrence: JP)
  Receive Date: 20170116
  Receipt Date: 20190919
  Transmission Date: 20191004
  Serious: Yes (Death, Life-Threatening, Other)
  Sender: FDA-Public Use
  Company Number: JP-ACTELION-A-CH2017-148396

PATIENT
  Age: 61 Year
  Sex: Male
  Weight: 52 kg

DRUGS (9)
  1. CARELOAD [Concomitant]
     Active Substance: BERAPROST SODIUM
     Dosage: UNK
  2. NESINA [Concomitant]
     Active Substance: ALOGLIPTIN BENZOATE
  3. OPSUMIT [Suspect]
     Active Substance: MACITENTAN
     Indication: PULMONARY ARTERIAL HYPERTENSION
     Dosage: 10 MG, QD
     Route: 048
     Dates: start: 20160620, end: 201812
  4. ADEMPAS [Concomitant]
     Active Substance: RIOCIGUAT
     Indication: PRODUCT USED FOR UNKNOWN INDICATION
  5. UPTRAVI [Suspect]
     Active Substance: SELEXIPAG
     Dosage: 1200 ?G, QD
     Route: 048
     Dates: start: 20170101, end: 20170103
  6. UPTRAVI [Suspect]
     Active Substance: SELEXIPAG
     Dosage: 1600 ?G, QD
     Route: 048
     Dates: start: 20170104, end: 20170105
  7. ADCIRCA [Concomitant]
     Active Substance: TADALAFIL
  8. UPTRAVI [Suspect]
     Active Substance: SELEXIPAG
     Indication: PULMONARY ARTERIAL HYPERTENSION
     Dosage: 200 ?G, BID
     Route: 048
     Dates: start: 20161226, end: 20161228
  9. UPTRAVI [Suspect]
     Active Substance: SELEXIPAG
     Dosage: 800 ?G, QD
     Route: 048
     Dates: start: 20161229, end: 20161231

REACTIONS (9)
  - Pyrexia [Recovered/Resolved]
  - Diarrhoea [Recovered/Resolved]
  - Nausea [Recovered/Resolved]
  - Hepatic cancer [Fatal]
  - Oedema [Fatal]
  - Ammonia increased [Fatal]
  - Ascites [Fatal]
  - Haematemesis [Recovered/Resolved]
  - Blood pressure increased [Unknown]

NARRATIVE: CASE EVENT DATE: 20161226
